FAERS Safety Report 6188435-0 (Version None)
Quarter: 2009Q2

REPORT INFORMATION
  Report Type: 
  Country: None (occurrence: None)
  Receive Date: 20090513
  Receipt Date: 20090506
  Transmission Date: 20091009
  Serious: Yes (Hospitalization, Other)
  Sender: FDA-Public Use
  Company Number: DE-JNJFOC-20090404503

PATIENT
  Sex: Female
  Weight: 57.5 kg

DRUGS (2)
  1. RISPERDAL [Suspect]
     Indication: PSYCHOTIC DISORDER
     Dosage: SINCE 10 YEARS
     Route: 048
  2. CITALOPRAM HYDROBROMIDE [Concomitant]

REACTIONS (1)
  - LEUKOPENIA [None]
